FAERS Safety Report 16565851 (Version 1)
Quarter: 2019Q3

REPORT INFORMATION
  Report Type: Spontaneous
  Country: JP (occurrence: JP)
  Receive Date: 20190712
  Receipt Date: 20190712
  Transmission Date: 20191004
  Serious: No
  Sender: FDA-Public Use
  Company Number: JP-ELI_LILLY_AND_COMPANY-JP201812001470

PATIENT
  Age: 50 Year
  Sex: Male

DRUGS (1)
  1. ZALUTIA [Suspect]
     Active Substance: TADALAFIL
     Indication: DYSURIA
     Dosage: 5 MG, DAILY
     Route: 048
     Dates: start: 201810

REACTIONS (6)
  - Rhinorrhoea [Unknown]
  - Myalgia [Unknown]
  - Throat irritation [Unknown]
  - Eye pruritus [Unknown]
  - Asthma [Unknown]
  - Gastrooesophageal reflux disease [Unknown]

NARRATIVE: CASE EVENT DATE: 2018
